FAERS Safety Report 11603534 (Version 1)
Quarter: 2015Q4

REPORT INFORMATION
  Report Type: Spontaneous
  Country: US (occurrence: None)
  Receive Date: 20151006
  Receipt Date: 20151006
  Transmission Date: 20160304
  Serious: Yes (Hospitalization)
  Sender: FDA-Public Use
  Company Number: None

PATIENT
  Age: 9 Year
  Sex: Male
  Weight: 21.2 kg

DRUGS (9)
  1. DAUNORUBICIN [Suspect]
     Active Substance: DAUNORUBICIN
     Dates: end: 20141223
  2. DEXAMETHASONE. [Suspect]
     Active Substance: DEXAMETHASONE
     Dates: end: 20141223
  3. METHOTREXATE [Suspect]
     Active Substance: METHOTREXATE
     Dates: end: 20150908
  4. CYCLOPHOSPHAMIDE. [Suspect]
     Active Substance: CYCLOPHOSPHAMIDE
     Dates: end: 20150831
  5. CYTARABINE. [Suspect]
     Active Substance: CYTARABINE
     Dates: end: 20150831
  6. VINCRISTINE SULFATE. [Suspect]
     Active Substance: VINCRISTINE SULFATE
     Dates: end: 20150810
  7. ONCASPAR [Suspect]
     Active Substance: PEGASPARGASE
     Dates: end: 20150813
  8. MERCAPTOPURINE. [Suspect]
     Active Substance: MERCAPTOPURINE
     Dates: end: 20150726
  9. DOXORUBICIN HYDROCHLORIDE. [Suspect]
     Active Substance: DOXORUBICIN HYDROCHLORIDE
     Dates: end: 20150810

REACTIONS (6)
  - Mucormycosis [None]
  - Bone disorder [None]
  - Platelet count decreased [None]
  - Sinusitis [None]
  - Pyrexia [None]
  - Headache [None]

NARRATIVE: CASE EVENT DATE: 20150913
